FAERS Safety Report 5513405-2 (Version None)
Quarter: 2007Q4

REPORT INFORMATION
  Report Type: 
  Country: None (occurrence: None)
  Receive Date: 20071112
  Receipt Date: 20071102
  Transmission Date: 20080405
  Serious: Yes (Other)
  Sender: FDA-Public Use
  Company Number: ZW-ABBOTT-07P-167-0423436-00

PATIENT
  Age: 23 Year
  Sex: Female

DRUGS (7)
  1. KALETRA [Suspect]
     Indication: ANTIRETROVIRAL THERAPY
     Route: 048
     Dates: start: 20060807, end: 20070528
  2. KALETRA [Suspect]
     Route: 048
     Dates: start: 20070528, end: 20070604
  3. KALETRA [Suspect]
     Route: 048
     Dates: start: 20070604
  4. DIDANOSINE [Suspect]
     Indication: ANTIRETROVIRAL THERAPY
     Route: 048
     Dates: start: 20060807
  5. EFAVIRENZ [Suspect]
     Indication: ANTIRETROVIRAL THERAPY
     Route: 048
     Dates: start: 20060904, end: 20070528
  6. EFAVIRENZ [Suspect]
     Route: 048
     Dates: start: 20070604
  7. LAMIVUDINE [Suspect]
     Indication: ANTIRETROVIRAL THERAPY
     Route: 048
     Dates: start: 20070528, end: 20070604

REACTIONS (1)
  - STILLBIRTH [None]
